FAERS Safety Report 21000748 (Version 1)
Quarter: 2022Q2

REPORT INFORMATION
  Report Type: Spontaneous
  Country: CA (occurrence: None)
  Receive Date: 20220623
  Receipt Date: 20220623
  Transmission Date: 20220721
  Serious: Yes (Hospitalization)
  Sender: FDA-Public Use
  Company Number: 2022A227128

PATIENT
  Age: 84 Year
  Sex: Female

DRUGS (1)
  1. ROSUVASTATIN [Suspect]
     Active Substance: ROSUVASTATIN
     Indication: Acute coronary syndrome
     Route: 048

REACTIONS (6)
  - Acute kidney injury [Unknown]
  - Gait disturbance [Unknown]
  - Asthenia [Unknown]
  - Blood creatine phosphokinase abnormal [Unknown]
  - Hypoaesthesia [Unknown]
  - Myoglobin urine present [Unknown]
